FAERS Safety Report 7482467-8 (Version None)
Quarter: 2011Q2

REPORT INFORMATION
  Report Type: 
  Country: None (occurrence: None)
  Receive Date: 20110516
  Receipt Date: 20110506
  Transmission Date: 20111010
  Serious: Yes (Hospitalization)
  Sender: FDA-Public Use
  Company Number: FR-ASTRAZENECA-2011SE27384

PATIENT
  Age: 27032 Day
  Sex: Female

DRUGS (11)
  1. LEVOTHYROXINE SODIUM [Interacting]
     Indication: HYPOTHYROIDISM
     Route: 048
  2. DIGOXIN [Concomitant]
     Indication: ATRIAL FIBRILLATION
     Route: 048
     Dates: start: 20101101
  3. SOTALOL HCL [Concomitant]
     Indication: ATRIAL FIBRILLATION
     Route: 048
  4. STABLON [Concomitant]
     Indication: DEPRESSION
     Route: 048
     Dates: start: 20110101
  5. NEXIUM [Suspect]
     Route: 048
     Dates: start: 20101101
  6. COUMADIN [Interacting]
     Indication: ATRIAL FIBRILLATION
     Route: 048
     Dates: start: 20110119, end: 20110127
  7. ATORVASTATIN CALCIUM [Interacting]
     Route: 048
     Dates: start: 20110101
  8. LOVENOX [Concomitant]
  9. METFORMIN HCL [Concomitant]
     Indication: TYPE 1 DIABETES MELLITUS
     Route: 048
  10. LYRICA [Concomitant]
     Indication: NEUROPATHY PERIPHERAL
     Route: 048
     Dates: start: 20110104
  11. ACETAMINOPHEN [Interacting]
     Indication: PAIN
     Route: 048
     Dates: start: 20110101

REACTIONS (2)
  - HAEMATOMA [None]
  - DRUG INTERACTION [None]
